FAERS Safety Report 8909706 (Version 3)
Quarter: 2013Q1

REPORT INFORMATION
  Report Type: Spontaneous
  Country: GB (occurrence: GB)
  Receive Date: 20121115
  Receipt Date: 20130208
  Transmission Date: 20140127
  Serious: No
  Sender: FDA-Public Use
  Company Number: GB-JNJFOC-20121016449

PATIENT
  Sex: Female

DRUGS (2)
  1. XEPLION [Suspect]
     Indication: BIPOLAR DISORDER
     Dosage: DAY 8
     Route: 030
  2. XEPLION [Suspect]
     Indication: BIPOLAR DISORDER
     Dosage: DAY 1
     Route: 030

REACTIONS (2)
  - Incorrect dose administered [Unknown]
  - Off label use [Unknown]
